FAERS Safety Report 9625829 (Version 1)
Quarter: 2013Q4

REPORT INFORMATION
  Report Type: Spontaneous
  Country: US (occurrence: None)
  Receive Date: 20131015
  Receipt Date: 20131015
  Transmission Date: 20140711
  Serious: Yes (Disabling)
  Sender: FDA-Public Use
  Company Number: None

PATIENT
  Age: 46 Year
  Sex: Female
  Weight: 52.16 kg

DRUGS (1)
  1. LEVAQUIN [Suspect]
     Indication: SINUSITIS
     Dosage: 1 PILL ONCE DAILY
     Route: 048

REACTIONS (7)
  - Neuropathy peripheral [None]
  - Tendon disorder [None]
  - Arthropathy [None]
  - Cartilage injury [None]
  - Vascular injury [None]
  - Nervous system disorder [None]
  - Anxiety [None]
